FAERS Safety Report 19462027 (Version 1)
Quarter: 2021Q2

REPORT INFORMATION
  Report Type: Report from Study
  Country: DE (occurrence: DE)
  Receive Date: 20210625
  Receipt Date: 20210625
  Transmission Date: 20210717
  Serious: Yes (Other)
  Sender: FDA-Public Use
  Company Number: DE-ELI_LILLY_AND_COMPANY-DE201901015684

PATIENT
  Sex: Female
  Weight: 70 kg

DRUGS (7)
  1. ONDANSETRON [Concomitant]
     Active Substance: ONDANSETRON
     Indication: PROPHYLAXIS
     Dosage: 8 MG, UNKNOWN (DAY 1 OF CHEMOTHERAPY)
     Route: 048
     Dates: start: 20180925, end: 20181127
  2. ZOPICLONE [Concomitant]
     Active Substance: ZOPICLONE
     Indication: SLEEP DISORDER
     Dosage: 7.5 MG, UNKNOWN
     Route: 048
     Dates: start: 20150713
  3. GEMZAR [Suspect]
     Active Substance: GEMCITABINE HYDROCHLORIDE
     Indication: OVARIAN GERM CELL CHORIOCARCINOMA STAGE III
     Dosage: 1509 MG, CYCLICAL (ON DAY 1 AND 8, CYCLICAL DAY 28)
     Route: 065
     Dates: start: 20180925, end: 20181127
  4. PANTOPRAZOLE [Concomitant]
     Active Substance: PANTOPRAZOLE
     Indication: PROPHYLAXIS
     Dosage: UNK, UNKNOWN
     Route: 048
  5. OVASTAT [Suspect]
     Active Substance: TREOSULFAN
     Dosage: 5000 MG/M2, UNK
     Route: 042
     Dates: start: 20180927
  6. DEXAMETHASONE. [Concomitant]
     Active Substance: DEXAMETHASONE
     Indication: PROPHYLAXIS
     Dosage: 4 MG, UNKNOWN (DAY 1 OF CHEMOTHERAPY)
     Route: 048
     Dates: start: 20180925, end: 20181127
  7. OVASTAT [Suspect]
     Active Substance: TREOSULFAN
     Indication: OVARIAN GERM CELL CHORIOCARCINOMA STAGE III
     Dosage: 9432 MG, CYCLICAL
     Route: 041
     Dates: start: 20180925, end: 20181127

REACTIONS (1)
  - Platelet count decreased [Recovered/Resolved]

NARRATIVE: CASE EVENT DATE: 20181204
